FAERS Safety Report 9322126 (Version 1)
Quarter: 2013Q2

REPORT INFORMATION
  Report Type: Spontaneous
  Country: DE (occurrence: DE)
  Receive Date: 20130531
  Receipt Date: 20130531
  Transmission Date: 20140414
  Serious: Yes (Hospitalization, Other)
  Sender: FDA-Public Use
  Company Number: DE-PFIZER INC-2013161829

PATIENT
  Age: 49 Year
  Sex: Male

DRUGS (1)
  1. VIAGRA [Suspect]
     Dosage: 25 MG, (A HALF OF 50 MG TABLET)
     Dates: end: 2012

REACTIONS (7)
  - Glaucoma [Unknown]
  - Optic nerve disorder [Unknown]
  - Intraocular pressure increased [Unknown]
  - Abnormal sensation in eye [Unknown]
  - Headache [Unknown]
  - Gingival disorder [Unknown]
  - Drug effect incomplete [Unknown]
